FAERS Safety Report 8265967-2 (Version None)
Quarter: 2012Q2

REPORT INFORMATION
  Report Type: 
  Country: None (occurrence: None)
  Receive Date: 20120406
  Receipt Date: 20120403
  Transmission Date: 20120825
  Serious: Yes (Other)
  Sender: FDA-Public Use
  Company Number: CH-BRACCO-000074

PATIENT
  Age: 79 Year
  Sex: Female
  Weight: 76 kg

DRUGS (24)
  1. PASPERTIN [Concomitant]
     Route: 048
  2. TORSEMIDE [Concomitant]
     Route: 048
  3. MULTIHANCE [Suspect]
     Indication: ANEURYSM
     Route: 042
     Dates: start: 20120203, end: 20120203
  4. DIPYRONE TAB [Concomitant]
     Dosage: DROPS AS REQUIRED.
  5. SOMNIUM [Concomitant]
     Dosage: (1MG LORAZEPAM/25MG DIPHENHYDRAMINE) - HALF TABLET PER DAY
     Route: 048
  6. PRAVALOTIN MEPHA [Concomitant]
     Route: 048
  7. MULTIHANCE [Suspect]
     Indication: NUCLEAR MAGNETIC RESONANCE IMAGING BRAIN
     Route: 042
     Dates: start: 20120203, end: 20120203
  8. MULTIHANCE [Suspect]
     Indication: PITUITARY TUMOUR BENIGN
     Route: 042
     Dates: start: 20120203, end: 20120203
  9. MULTIHANCE [Suspect]
     Indication: MENINGIOMA
     Route: 042
     Dates: start: 20120203, end: 20120203
  10. GLICLAZIDE [Concomitant]
     Route: 048
  11. CARVEDILOL [Concomitant]
     Dosage: 1/2 TABLET TWICE PER DAY
     Route: 048
  12. CALCIUM D3 SANDOZ [Concomitant]
     Dosage: ONE DOSAGE FORM
     Route: 048
  13. CIRCADIN [Concomitant]
     Route: 048
  14. HYDROCORTISONE [Concomitant]
     Route: 048
  15. ZANTAC [Suspect]
     Indication: PREMEDICATION
     Dosage: 2 AMPOULES
     Route: 042
     Dates: start: 20120203, end: 20120203
  16. CETIRIZINE HCL [Concomitant]
     Route: 048
  17. MAGNESIOCARD [Concomitant]
     Route: 048
  18. LEVOTHYROXINE SODIUM [Concomitant]
     Route: 048
  19. BURGERSTEIN GERIATRIKUM [Concomitant]
     Route: 048
  20. FENISTIL [Suspect]
     Indication: PREMEDICATION
     Dosage: 2 AMPOULES
     Route: 042
     Dates: start: 20120203, end: 20120203
  21. ALLOPURINOL [Concomitant]
     Dosage: HALF TABLET PER DAY
     Route: 048
  22. ASPIRIN [Concomitant]
     Route: 048
  23. JANUVIA [Concomitant]
     Route: 048
  24. MULTIHANCE [Suspect]
     Indication: SURGERY
     Route: 042
     Dates: start: 20120203, end: 20120203

REACTIONS (6)
  - MALAISE [None]
  - ASTHENIA [None]
  - DYSPNOEA [None]
  - ATRIAL TACHYCARDIA [None]
  - CARDIAC FAILURE [None]
  - CONDITION AGGRAVATED [None]
